FAERS Safety Report 13934355 (Version 1)
Quarter: 2017Q3

REPORT INFORMATION
  Report Type: Spontaneous
  Country: US (occurrence: US)
  Receive Date: 20170905
  Receipt Date: 20170905
  Transmission Date: 20171127
  Serious: Yes (Other)
  Sender: FDA-Public Use
  Company Number: US-ACCORD-057949

PATIENT
  Age: 12 Year
  Sex: Male
  Weight: 43.3 kg

DRUGS (1)
  1. TACROLIMUS ACCORD [Suspect]
     Active Substance: TACROLIMUS
     Indication: RENAL TRANSPLANT
     Dosage: TWICE DAILY DOSING
     Route: 048
     Dates: start: 20170712

REACTIONS (2)
  - Drug level decreased [Unknown]
  - Product substitution issue [Unknown]
